FAERS Safety Report 11331857 (Version 1)
Quarter: 2015Q3

REPORT INFORMATION
  Report Type: Spontaneous
  Country: US (occurrence: US)
  Receive Date: 20150803
  Receipt Date: 20150803
  Transmission Date: 20151125
  Serious: Yes (Other)
  Sender: FDA-Public Use
  Company Number: US-ELI_LILLY_AND_COMPANY-US200804003318

PATIENT
  Age: 25 Year
  Sex: Female

DRUGS (2)
  1. NOVAIN [Concomitant]
  2. ZYPREXA [Suspect]
     Active Substance: OLANZAPINE
     Dosage: 30 MG, DAILY (1/D)
     Dates: start: 1998

REACTIONS (2)
  - Cerebrovascular accident [Unknown]
  - Prescribed overdose [Unknown]

NARRATIVE: CASE EVENT DATE: 1998
